FAERS Safety Report 7138428-1 (Version None)
Quarter: 2010Q4

REPORT INFORMATION
  Report Type: 
  Country: None (occurrence: None)
  Receive Date: 20101206
  Receipt Date: 20101126
  Transmission Date: 20110411
  Serious: Yes (Death)
  Sender: FDA-Public Use
  Company Number: AT-ABBOTT-10P-009-0685818-00

PATIENT
  Age: 82 Year
  Sex: Male

DRUGS (1)
  1. TRENANTONE [Suspect]
     Indication: PROSTATE CANCER
     Route: 058
     Dates: start: 20090101

REACTIONS (2)
  - CEREBRAL DISORDER [None]
  - DEMENTIA ALZHEIMER'S TYPE [None]
